FAERS Safety Report 11619773 (Version 2)
Quarter: 2016Q2

REPORT INFORMATION
  Report Type: Spontaneous
  Country: IE (occurrence: IE)
  Receive Date: 20151012
  Receipt Date: 20160530
  Transmission Date: 20160815
  Serious: Yes (Other)
  Sender: FDA-Public Use
  Company Number: IE-JNJFOC-20151001913

PATIENT

DRUGS (1)
  1. STELARA [Suspect]
     Active Substance: USTEKINUMAB
     Indication: TEMPORAL ARTERITIS
     Dosage: DURATION 8 (5,11 MONTHS)
     Route: 058

REACTIONS (7)
  - Paraesthesia [Unknown]
  - Urinary tract infection [Unknown]
  - Product use issue [Unknown]
  - Tooth abscess [Unknown]
  - Lower respiratory tract infection [Unknown]
  - Off label use [Unknown]
  - Alopecia [Unknown]
